FAERS Safety Report 8043336-8 (Version None)
Quarter: 2012Q1

REPORT INFORMATION
  Report Type: 
  Country: None (occurrence: None)
  Receive Date: 20120112
  Receipt Date: 20120106
  Transmission Date: 20120608
  Serious: Yes (Disabling)
  Sender: FDA-Public Use
  Company Number: JP-GLAXOSMITHKLINE-B0774525A

PATIENT
  Sex: Female
  Weight: 50 kg

DRUGS (4)
  1. ALKERAN [Suspect]
     Indication: STEM CELL TRANSPLANT
     Dosage: 70MGM2 PER DAY
     Route: 042
     Dates: start: 20080825, end: 20080825
  2. UNKNOWN DRUG [Suspect]
     Indication: STEM CELL TRANSPLANT
     Dosage: 300MGM2 PER DAY
     Route: 065
     Dates: start: 20080901, end: 20080901
  3. CYCLOPHOSPHAMIDE [Suspect]
     Indication: STEM CELL TRANSPLANT
     Dosage: 60MGK PER DAY
     Route: 065
     Dates: start: 20080905, end: 20080906
  4. CYCLOSPORINE [Concomitant]
     Indication: IMMUNOSUPPRESSION
     Dosage: 150MG PER DAY
     Route: 042
     Dates: start: 20080907

REACTIONS (12)
  - SEPSIS [None]
  - HAEMATOTOXICITY [None]
  - STOMATITIS [None]
  - INFECTION [None]
  - BACTERIAL INFECTION [None]
  - GRAFT VERSUS HOST DISEASE [None]
  - DIARRHOEA [None]
  - PYREXIA [None]
  - FEBRILE NEUTROPENIA [None]
  - RASH [None]
  - JAUNDICE [None]
  - ERYTHEMA [None]
